FAERS Safety Report 9156256 (Version 1)
Quarter: 2013Q1

REPORT INFORMATION
  Report Type: Spontaneous
  Country: US (occurrence: US)
  Receive Date: 20130123
  Receipt Date: 20130123
  Transmission Date: 20140127
  Serious: No
  Sender: FDA-Public Use
  Company Number: US-BRACCO-007613

PATIENT
  Age: 40 Year
  Sex: Female
  Weight: 84 kg

DRUGS (4)
  1. MULTIHANCE [Suspect]
     Indication: NUCLEAR MAGNETIC RESONANCE IMAGING
     Route: 042
     Dates: start: 20120208, end: 20120208
  2. MULTIHANCE [Suspect]
     Indication: SURGERY
     Route: 042
     Dates: start: 20120208, end: 20120208
  3. MULTIHANCE [Suspect]
     Indication: BACK PAIN
     Route: 042
     Dates: start: 20120208, end: 20120208
  4. NORCO [Concomitant]

REACTIONS (2)
  - Hypersensitivity [Recovered/Resolved]
  - Panic attack [Recovered/Resolved]
